FAERS Safety Report 7506709-5 (Version None)
Quarter: 2011Q2

REPORT INFORMATION
  Report Type: 
  Country: None (occurrence: None)
  Receive Date: 20110526
  Receipt Date: 20110524
  Transmission Date: 20111010
  Serious: Yes (Other)
  Sender: FDA-Public Use
  Company Number: JP-ASTRAZENECA-2011SE31369

PATIENT
  Age: 5 Year
  Sex: Male

DRUGS (5)
  1. XYLOCAINE [Suspect]
     Route: 042
  2. XYLOCAINE [Suspect]
     Route: 042
  3. XYLOCAINE [Suspect]
     Indication: VENTRICULAR EXTRASYSTOLES
     Dosage: 1 MG/KG
     Route: 042
  4. INDERAL [Suspect]
     Indication: VENTRICULAR EXTRASYSTOLES
     Route: 048
  5. XYLOCAINE [Suspect]
     Dosage: 15-30 MICRO-G/KG/MIN
     Route: 042

REACTIONS (1)
  - MYOCARDIAL DEPRESSION [None]
